FAERS Safety Report 13106586 (Version 4)
Quarter: 2017Q1

REPORT INFORMATION
  Report Type: Report from Study
  Country: US (occurrence: US)
  Receive Date: 20170111
  Receipt Date: 20170315
  Transmission Date: 20170428
  Serious: Yes (Other)
  Sender: FDA-Public Use
  Company Number: US-BAYER-2017-002591

PATIENT
  Age: 62 Year
  Sex: Male

DRUGS (2)
  1. STIVARGA [Suspect]
     Active Substance: REGORAFENIB
     Indication: COLORECTAL CANCER
     Dosage: 120 MG, QD
     Route: 048
     Dates: start: 20170124, end: 20170228
  2. STIVARGA [Suspect]
     Active Substance: REGORAFENIB
     Indication: COLORECTAL CANCER
     Dosage: 160 MG, QD
     Route: 048
     Dates: start: 20161227, end: 20170123

REACTIONS (14)
  - Neuropathy peripheral [None]
  - Blister [None]
  - Fatigue [None]
  - Blood pressure increased [None]
  - Skin discolouration [None]
  - Erythema [None]
  - Skin fissures [None]
  - Pain in extremity [None]
  - Blister [None]
  - Tumour marker increased [None]
  - Chest discomfort [Recovered/Resolved]
  - Dry skin [None]
  - Weight decreased [None]
  - Blood pressure increased [None]

NARRATIVE: CASE EVENT DATE: 201612
